FAERS Safety Report 14323298 (Version 1)
Quarter: 2017Q4

REPORT INFORMATION
  Report Type: Report from Study
  Country: None (occurrence: US)
  Receive Date: 20171226
  Receipt Date: 20171226
  Transmission Date: 20180321
  Serious: Yes (Other)
  Sender: FDA-Public Use
  Company Number: US-ABBVIE-17K-163-2118471-00

PATIENT
  Sex: Female

DRUGS (1)
  1. HUMIRA [Suspect]
     Active Substance: ADALIMUMAB
     Indication: PSORIASIS
     Route: 058
     Dates: start: 20170602, end: 2017

REACTIONS (7)
  - Injection site papule [Unknown]
  - Fatigue [Not Recovered/Not Resolved]
  - Unintentional medical device removal [Unknown]
  - Erythema [Not Recovered/Not Resolved]
  - Tympanic membrane perforation [Unknown]
  - Injection site pruritus [Unknown]
  - Pruritus [Not Recovered/Not Resolved]

NARRATIVE: CASE EVENT DATE: 2017
